FAERS Safety Report 6978606-5 (Version None)
Quarter: 2010Q3

REPORT INFORMATION
  Report Type: 
  Country: None (occurrence: None)
  Receive Date: 20100913
  Receipt Date: 20100903
  Transmission Date: 20110219
  Serious: Yes (Hospitalization)
  Sender: FDA-Public Use
  Company Number: BE-ROCHE-716637

PATIENT
  Sex: Female
  Weight: 98 kg

DRUGS (2)
  1. CAPECITABINE [Suspect]
     Indication: RECTAL CANCER
     Dosage: BID D1-33. DATE OF LAST DOSE PRIOR TO SAE: 18 JULY 2010
     Route: 048
     Dates: start: 20100621
  2. OXALIPLATIN [Suspect]
     Indication: RECTAL CANCER
     Dosage: DATE OF LAST DOSE PRIOR TO SAE: 12 JULY 2010
     Route: 042
     Dates: start: 20100621

REACTIONS (5)
  - DIARRHOEA [None]
  - GENERAL PHYSICAL HEALTH DETERIORATION [None]
  - NAUSEA [None]
  - PYREXIA [None]
  - VOMITING [None]
